FAERS Safety Report 12504352 (Version 1)
Quarter: 2016Q2

REPORT INFORMATION
  Report Type: Spontaneous
  Country: TR (occurrence: TR)
  Receive Date: 20160628
  Receipt Date: 20160628
  Transmission Date: 20160815
  Serious: Yes (Hospitalization)
  Sender: FDA-Public Use
  Company Number: TR-HQ SPECIALTY-TR-2016INT000404

PATIENT
  Age: 5 Year
  Sex: Male

DRUGS (5)
  1. METHOTREXATE [Concomitant]
     Active Substance: METHOTREXATE
     Indication: OSTEOSARCOMA
     Dosage: HIGH DOSE
  2. MANNITOL. [Concomitant]
     Active Substance: MANNITOL
     Indication: OSTEOSARCOMA
     Dosage: UNK, ON DAY 1
     Route: 065
  3. MAGNESIUM SULFATE. [Concomitant]
     Active Substance: MAGNESIUM SULFATE
     Indication: OSTEOSARCOMA
     Dosage: UNK, ON DAY 1
     Route: 065
  4. CISPLATIN. [Suspect]
     Active Substance: CISPLATIN
     Indication: OSTEOSARCOMA
     Dosage: 60 MG/M2/DAY SINGLE DOSE; DURING 2 DAYS
  5. DOXORUBICIN [Concomitant]
     Active Substance: DOXORUBICIN
     Indication: OSTEOSARCOMA
     Dosage: UNK

REACTIONS (7)
  - Inappropriate antidiuretic hormone secretion [Recovered/Resolved]
  - Generalised tonic-clonic seizure [Recovered/Resolved]
  - Hyponatraemia [Recovered/Resolved]
  - Hypertension [Recovered/Resolved]
  - Urine sodium increased [Recovered/Resolved]
  - Urine osmolarity increased [Recovered/Resolved]
  - Blood osmolarity decreased [Recovered/Resolved]
